FAERS Safety Report 4585328-7 (Version None)
Quarter: 2005Q1

REPORT INFORMATION
  Report Type: 
  Country: None (occurrence: None)
  Receive Date: 20050214
  Receipt Date: 20050202
  Transmission Date: 20050727
  Serious: Yes (Hospitalization)
  Sender: FDA-Public Use
  Company Number: 2004UW25566

PATIENT
  Age: 56 Year
  Sex: Female
  Weight: 77.8 kg

DRUGS (10)
  1. GEFITINIB [Suspect]
     Indication: GLIOMA
     Dosage: 500 MG QD PO
     Route: 048
     Dates: start: 20041029, end: 20041208
  2. GEFITINIB [Suspect]
     Indication: RECURRENT CANCER
     Dosage: 500 MG QD PO
     Route: 048
     Dates: start: 20041029, end: 20041208
  3. GEFITINIB [Suspect]
     Indication: GLIOMA
     Dosage: 500 MG QD PO
     Route: 048
     Dates: start: 20050114, end: 20050210
  4. GEFITINIB [Suspect]
     Indication: RECURRENT CANCER
     Dosage: 500 MG QD PO
     Route: 048
     Dates: start: 20050114, end: 20050210
  5. RAPAMUNE [Suspect]
     Indication: MALIGNANT MELANOMA
     Dosage: 30 MG ONCE
  6. RAPAMUNE [Suspect]
     Indication: RECURRENT CANCER
     Dosage: 30 MG ONCE
  7. RAPAMUNE [Suspect]
     Indication: GLIOMA
     Dosage: 10 MG QD PO
     Route: 048
     Dates: start: 20041105, end: 20041208
  8. RAPAMUNE [Suspect]
     Indication: RECURRENT CANCER
     Dosage: 10 MG QD PO
     Route: 048
     Dates: start: 20041105, end: 20041208
  9. RAPAMUNE [Suspect]
     Indication: GLIOMA
     Dosage: 5 MG QD PO
     Route: 048
     Dates: start: 20050114, end: 20050210
  10. RAPAMUNE [Suspect]
     Indication: RECURRENT CANCER
     Dosage: 5 MG QD PO
     Route: 048
     Dates: start: 20050114, end: 20050210

REACTIONS (26)
  - ANAEMIA [None]
  - BLOOD OSMOLARITY DECREASED [None]
  - BONE LESION [None]
  - CONDITION AGGRAVATED [None]
  - DEHYDRATION [None]
  - DEPRESSED LEVEL OF CONSCIOUSNESS [None]
  - DIABETES MELLITUS [None]
  - DIARRHOEA [None]
  - EATING DISORDER [None]
  - EPISTAXIS [None]
  - FATIGUE [None]
  - GASTROOESOPHAGEAL REFLUX DISEASE [None]
  - HYPERGLYCAEMIA [None]
  - HYPERLIPIDAEMIA [None]
  - HYPONATRAEMIA [None]
  - IMPAIRED SELF-CARE [None]
  - LETHARGY [None]
  - LEUKOPENIA [None]
  - LUNG INFECTION [None]
  - MALAISE [None]
  - MUCOSAL INFLAMMATION [None]
  - PNEUMONIA [None]
  - PULMONARY CONGESTION [None]
  - REFUSAL OF TREATMENT BY PATIENT [None]
  - REFUSAL OF TREATMENT BY RELATIVE [None]
  - STOMATITIS [None]
